FAERS Safety Report 10137764 (Version 1)
Quarter: 2014Q2

REPORT INFORMATION
  Report Type: Spontaneous
  Country: US (occurrence: None)
  Receive Date: 20140428
  Receipt Date: 20140428
  Transmission Date: 20141212
  Serious: Yes (Hospitalization, Disabling)
  Sender: FDA-Public Use
  Company Number: None

PATIENT
  Age: 62 Year
  Sex: Female
  Weight: 122.47 kg

DRUGS (8)
  1. ZOLPIDEM (AMBIEN) [Suspect]
     Indication: INSOMNIA
     Dosage: 10 MG, 1 TABLET AT BEDTIME, AS NEEDED FOR INSOMNIA, 30 PILLS, BY MOUTH
     Route: 048
     Dates: start: 20121102, end: 20131213
  2. ZOLPIDEM 10 MG TEVA [Concomitant]
  3. FLUOXETINE [Suspect]
     Indication: MENTAL DISORDER
  4. OXYCODONE ACETAMINOPHEN [Suspect]
  5. ATENOLOL 50 MG [Suspect]
  6. MELATONIN [Suspect]
  7. MELATONIN [Concomitant]
  8. PREVACID [Concomitant]

REACTIONS (5)
  - Fall [None]
  - Wrist fracture [None]
  - Amnesia [None]
  - Arthralgia [None]
  - Pain in extremity [None]
